FAERS Safety Report 13899494 (Version 1)
Quarter: 2017Q3

REPORT INFORMATION
  Report Type: Spontaneous
  Country: US (occurrence: US)
  Receive Date: 20170823
  Receipt Date: 20170823
  Transmission Date: 20171127
  Serious: Yes (Hospitalization)
  Sender: FDA-Public Use
  Company Number: None

PATIENT

DRUGS (2)
  1. MEKINIST [Concomitant]
     Active Substance: TRAMETINIB DIMETHYL SULFOXIDE
  2. AFINITOR [Suspect]
     Active Substance: EVEROLIMUS
     Route: 048

REACTIONS (3)
  - Pneumonitis [None]
  - Seizure [None]
  - Acute respiratory failure [None]

NARRATIVE: CASE EVENT DATE: 20170817
